FAERS Safety Report 4956381-3 (Version None)
Quarter: 2006Q1

REPORT INFORMATION
  Report Type: 
  Country: None (occurrence: None)
  Receive Date: 20060328
  Receipt Date: 20060328
  Transmission Date: 20060701
  Serious: Yes (Other)
  Sender: FDA-Public Use
  Company Number: None

PATIENT
  Age: 58 Year
  Sex: Female
  Weight: 81.6475 kg

DRUGS (1)
  1. KADIAN [Suspect]
     Indication: SPINAL OSTEOARTHRITIS
     Dosage: TWICE A DAY PO BID
     Route: 048
     Dates: start: 20050901, end: 20060301

REACTIONS (2)
  - HERPES ZOSTER [None]
  - PRURITUS [None]
